FAERS Safety Report 7352690-1 (Version None)
Quarter: 2011Q1

REPORT INFORMATION
  Report Type: 
  Country: None (occurrence: None)
  Receive Date: 20110315
  Receipt Date: 20110307
  Transmission Date: 20110831
  Serious: Yes (Other)
  Sender: FDA-Public Use
  Company Number: US-B.I. PHARMACEUTICALS,INC./RIDGEFIELD-2011-CN-00218CN

PATIENT
  Age: 61 Year
  Sex: Male

DRUGS (3)
  1. CELEBREX [Concomitant]
     Indication: PAIN
  2. PRADAXA [Suspect]
     Indication: THROMBOSIS PROPHYLAXIS
     Dosage: 300 MG
     Dates: start: 20110202, end: 20110205
  3. CYMBALTA [Concomitant]
     Indication: PAIN

REACTIONS (4)
  - BACK PAIN [None]
  - NAUSEA [None]
  - VOMITING [None]
  - PANCREATITIS ACUTE [None]
